FAERS Safety Report 23584622 (Version 1)
Quarter: 2024Q1

REPORT INFORMATION
  Report Type: Spontaneous
  Country: US (occurrence: US)
  Receive Date: 20240301
  Receipt Date: 20240301
  Transmission Date: 20240410
  Serious: No
  Sender: FDA-Public Use
  Company Number: US-SUN PHARMACEUTICAL INDUSTRIES LTD-2023R1-405204

PATIENT
  Sex: Female

DRUGS (1)
  1. METOPROLOL [Suspect]
     Active Substance: METOPROLOL
     Indication: Cardiac disorder
     Dosage: 12.5 MG IN MORNING AND 12.5 MG AT NIGHT
     Route: 065

REACTIONS (4)
  - Alopecia [Unknown]
  - Product prescribing error [Unknown]
  - Chest pain [Unknown]
  - Incorrect dose administered [Unknown]
